FAERS Safety Report 9784640 (Version 5)
Quarter: 2014Q2

REPORT INFORMATION
  Report Type: Spontaneous
  Country: US (occurrence: US)
  Receive Date: 20131226
  Receipt Date: 20140430
  Transmission Date: 20141212
  Serious: Yes (Other)
  Sender: FDA-Public Use
  Company Number: US-PFIZER INC-2013369320

PATIENT
  Age: 50 Year
  Sex: Female
  Weight: 58.05 kg

DRUGS (13)
  1. LYRICA [Suspect]
     Indication: PAIN
     Dosage: 75 MG, 2X/DAY
     Route: 048
     Dates: start: 20131210, end: 20131227
  2. LYRICA [Suspect]
     Indication: POST-TRAUMATIC STRESS DISORDER
  3. LYRICA [Suspect]
     Indication: DEPRESSION
  4. LYRICA [Suspect]
     Indication: ANXIETY
  5. LYRICA [Suspect]
     Indication: SCIATICA
  6. LYRICA [Suspect]
     Indication: PAIN
  7. METOPROLOL [Concomitant]
     Indication: BLOOD PRESSURE ABNORMAL
     Dosage: 50 MG, 1X/DAY
  8. MSIR [Concomitant]
     Dosage: 15-30 MG
  9. CLONAZEPAM [Concomitant]
     Dosage: 1-2 MG
  10. TOPROL [Concomitant]
     Dosage: 50 MG, UNK
  11. AMBIEN [Concomitant]
  12. ROZEREM [Concomitant]
  13. CYCLOBENZAPRINE [Concomitant]

REACTIONS (12)
  - Off label use [Unknown]
  - Suicidal ideation [Not Recovered/Not Resolved]
  - Autonomic neuropathy [Unknown]
  - Depression [Recovering/Resolving]
  - Drug ineffective [Unknown]
  - Pain [Unknown]
  - Drug intolerance [Unknown]
  - Local swelling [Unknown]
  - Irritability [Not Recovered/Not Resolved]
  - Anger [Not Recovered/Not Resolved]
  - Aggression [Not Recovered/Not Resolved]
  - Migraine [Unknown]
